FAERS Safety Report 5297961-8 (Version None)
Quarter: 2007Q2

REPORT INFORMATION
  Report Type: 
  Country: None (occurrence: None)
  Receive Date: 20070416
  Receipt Date: 20070402
  Transmission Date: 20071010
  Serious: Yes (Hospitalization, Other)
  Sender: FDA-Public Use
  Company Number: PHMT2007CA00976

PATIENT
  Age: 50 Year
  Sex: Female

DRUGS (1)
  1. ZELNORM [Suspect]
     Indication: CONSTIPATION
     Dosage: 12MG PER DAY
     Route: 048
     Dates: start: 20060101

REACTIONS (2)
  - BLOOD PRESSURE SYSTOLIC INCREASED [None]
  - HYPERTENSION [None]
